FAERS Safety Report 8297152-2 (Version None)
Quarter: 2012Q2

REPORT INFORMATION
  Report Type: 
  Country: None (occurrence: None)
  Receive Date: 20120419
  Receipt Date: 20120412
  Transmission Date: 20120825
  Serious: No
  Sender: FDA-Public Use
  Company Number: US-PFIZER INC-2012092237

PATIENT
  Sex: Male
  Weight: 88 kg

DRUGS (6)
  1. XANAX [Suspect]
     Indication: VERTIGO
     Dosage: 0.5 MG, 3X/DAY
     Route: 048
     Dates: start: 19860101, end: 19960101
  2. ALPRAZOLAM [Suspect]
     Indication: VERTIGO
     Dosage: 0.5 MG, 3X/DAY
     Route: 048
     Dates: start: 19960101, end: 19960101
  3. LATANOPROST [Concomitant]
     Dosage: UNK
  4. ALPRAZOLAM [Suspect]
     Indication: BALANCE DISORDER
  5. MECLIZINE [Concomitant]
     Indication: VERTIGO
     Dosage: UNK
  6. XANAX [Suspect]
     Indication: BALANCE DISORDER
     Dosage: UNK

REACTIONS (1)
  - DRUG INEFFECTIVE [None]
